FAERS Safety Report 13692765 (Version 29)
Quarter: 2020Q3

REPORT INFORMATION
  Report Type: Report from Study
  Country: CA (occurrence: CA)
  Receive Date: 20170627
  Receipt Date: 20200917
  Transmission Date: 20201102
  Serious: Yes (Hospitalization, Other)
  Sender: FDA-Public Use
  Company Number: CA-BRISTOL-MYERS SQUIBB COMPANY-BMS-2017-056337

PATIENT
  Age: 58 Year
  Sex: Female

DRUGS (5)
  1. SYNTHROID [Concomitant]
     Active Substance: LEVOTHYROXINE SODIUM
     Indication: PRODUCT USED FOR UNKNOWN INDICATION
     Route: 065
  2. ELIQUIS [Concomitant]
     Active Substance: APIXABAN
     Indication: PRODUCT USED FOR UNKNOWN INDICATION
     Route: 065
  3. ABATACEPT [Suspect]
     Active Substance: ABATACEPT
     Indication: RHEUMATOID ARTHRITIS
     Dosage: 750 MILLIGRAM, 3 VIALS, QMO
     Route: 042
     Dates: start: 20100607, end: 20180522
  4. METHOTREXATE. [Concomitant]
     Active Substance: METHOTREXATE
     Indication: RHEUMATOID ARTHRITIS
     Dosage: 20 MG, QWK
     Route: 058
  5. ABATACEPT [Suspect]
     Active Substance: ABATACEPT
     Dosage: 750 MILLIGRAM, Q4WK
     Route: 042

REACTIONS (40)
  - Skin cancer [Unknown]
  - Swelling [Unknown]
  - Back pain [Unknown]
  - Affect lability [Unknown]
  - Musculoskeletal stiffness [Unknown]
  - Fatigue [Recovered/Resolved with Sequelae]
  - Rhinorrhoea [Unknown]
  - Muscle spasms [Unknown]
  - Nausea [Not Recovered/Not Resolved]
  - Mobility decreased [Unknown]
  - Cough [Recovered/Resolved]
  - Decreased appetite [Not Recovered/Not Resolved]
  - Visual impairment [Unknown]
  - Visual acuity reduced [Unknown]
  - Colon cancer [Recovered/Resolved]
  - Suicidal ideation [Unknown]
  - Flank pain [Not Recovered/Not Resolved]
  - Thrombosis [Recovered/Resolved]
  - Increased tendency to bruise [Unknown]
  - Headache [Unknown]
  - Influenza like illness [Unknown]
  - Hepatic cyst [Unknown]
  - Paraesthesia [Unknown]
  - Head discomfort [Recovered/Resolved]
  - Pain in extremity [Unknown]
  - Melanocytic naevus [Unknown]
  - Abdominal pain [Unknown]
  - Nasopharyngitis [Recovering/Resolving]
  - Skin lesion [Unknown]
  - Nephrolithiasis [Unknown]
  - Foot fracture [Unknown]
  - Rheumatoid arthritis [Not Recovered/Not Resolved]
  - Arthralgia [Unknown]
  - Oropharyngeal pain [Unknown]
  - Peripheral swelling [Unknown]
  - Balance disorder [Unknown]
  - Hypoaesthesia [Unknown]
  - Dizziness [Recovered/Resolved]
  - Eye pain [Unknown]
  - Muscular weakness [Unknown]

NARRATIVE: CASE EVENT DATE: 201108
